FAERS Safety Report 6620983-9 (Version None)
Quarter: 2010Q1

REPORT INFORMATION
  Report Type: 
  Country: None (occurrence: None)
  Receive Date: 20100309
  Receipt Date: 20100222
  Transmission Date: 20100710
  Serious: Yes (Hospitalization)
  Sender: FDA-Public Use
  Company Number: PHHY2010BE08602

PATIENT
  Sex: Male

DRUGS (16)
  1. AFINITOR [Suspect]
     Indication: RENAL CELL CARCINOMA
     Dosage: 10 MG, UNK
     Route: 048
     Dates: start: 20091015, end: 20100111
  2. AFINITOR [Suspect]
     Dosage: UNK
     Dates: start: 20100131
  3. DURAGESIC-100 [Concomitant]
     Dosage: 100 UG DAILY
  4. MORPHINE SULFATE [Concomitant]
     Dosage: 40 MG, TID
  5. INNOHEP [Concomitant]
     Dosage: 4500 IU DAILY
     Route: 058
  6. ELTHYRONE [Concomitant]
     Dosage: 125 MG ON ALTERNATE DAYS
  7. ELTHYRONE [Concomitant]
     Dosage: 150 MG ON ALTERNATE DAYS
  8. EMCONCOR [Concomitant]
     Dosage: 2.5 MG DAILY
  9. DAFALGAN [Concomitant]
     Dosage: 1-2 GRAM DAILY
  10. ARANESP [Concomitant]
     Dosage: 30 UG, QW
     Dates: start: 20090501
  11. MEDROL [Concomitant]
     Dosage: 32 MG, UNK
  12. OMEPRAZOLE [Concomitant]
     Dosage: 20 MG, UNK
  13. ALPRAZOLAM [Concomitant]
     Dosage: 0.5 MG, BID
  14. CA KAYEXALATE [Concomitant]
     Dosage: 15 MG, TID
  15. RADIOTHERAPY [Concomitant]
     Indication: METASTASES TO BONE
  16. CHEMOTHERAPEUTICS NOS [Concomitant]

REACTIONS (15)
  - ACUTE PRERENAL FAILURE [None]
  - BLOOD LACTATE DEHYDROGENASE INCREASED [None]
  - C-REACTIVE PROTEIN INCREASED [None]
  - DEHYDRATION [None]
  - DIARRHOEA [None]
  - DISORIENTATION [None]
  - FUNGAL INFECTION [None]
  - GASTROENTERITIS [None]
  - GENERAL PHYSICAL HEALTH DETERIORATION [None]
  - LISTERIA SEPSIS [None]
  - PAIN [None]
  - PNEUMOCYSTIS JIROVECI PNEUMONIA [None]
  - PYREXIA [None]
  - SALMONELLA SEPSIS [None]
  - SEPTIC SHOCK [None]
